FAERS Safety Report 24095780 (Version 2)
Quarter: 2024Q3

REPORT INFORMATION
  Report Type: Spontaneous
  Country: US (occurrence: US)
  Receive Date: 20240716
  Receipt Date: 20240725
  Transmission Date: 20241017
  Serious: No
  Sender: BIOGEN
  Company Number: US-BIOGEN-2024BI01265275

PATIENT
  Sex: Female

DRUGS (6)
  1. AVONEX [Suspect]
     Active Substance: INTERFERON BETA-1A
     Indication: Multiple sclerosis
     Dosage: 30 MCG 0.5 ML KIT
     Route: 050
     Dates: start: 19990417
  2. AVONEX [Suspect]
     Active Substance: INTERFERON BETA-1A
  3. AVONEX [Suspect]
     Active Substance: INTERFERON BETA-1A
  4. AVONEX [Suspect]
     Active Substance: INTERFERON BETA-1A
  5. BUSPIRONE HYDROCHLORIDE [Concomitant]
     Active Substance: BUSPIRONE HYDROCHLORIDE
     Indication: Product used for unknown indication
     Route: 050
  6. TRIAMTERENE [Concomitant]
     Active Substance: TRIAMTERENE
     Dosage: 37.5 - 25 M
     Route: 050

REACTIONS (5)
  - Fall [Recovered/Resolved]
  - Nervousness [Unknown]
  - Memory impairment [Unknown]
  - Arthralgia [Not Recovered/Not Resolved]
  - Hypoaesthesia [Unknown]
